FAERS Safety Report 9941822 (Version 1)
Quarter: 2014Q1

REPORT INFORMATION
  Report Type: Report from Study
  Country: US (occurrence: US)
  Receive Date: 20140303
  Receipt Date: 20140303
  Transmission Date: 20141002
  Serious: No
  Sender: FDA-Public Use
  Company Number: US-ABBVIE-13P-163-1039930-00

PATIENT
  Age: 22 Year
  Sex: Female

DRUGS (3)
  1. HUMIRA [Suspect]
     Indication: CROHN^S DISEASE
     Route: 058
  2. OXYCODONE [Concomitant]
     Indication: PAIN
  3. PROMETHAZINE [Concomitant]
     Indication: NAUSEA

REACTIONS (1)
  - Nephrolithiasis [Recovered/Resolved]
